FAERS Safety Report 6215591-8 (Version None)
Quarter: 2009Q2

REPORT INFORMATION
  Report Type: 
  Country: None (occurrence: None)
  Receive Date: 20090603
  Receipt Date: 20090603
  Transmission Date: 20091009
  Serious: No
  Sender: FDA-Public Use
  Company Number: None

PATIENT
  Age: 33 Year
  Sex: Male
  Weight: 86.1834 kg

DRUGS (1)
  1. VICODIN [Suspect]
     Indication: TENDON INJURY
     Dosage: PO
     Route: 048
     Dates: start: 20090526, end: 20090601

REACTIONS (1)
  - DRUG DISPENSING ERROR [None]
